FAERS Safety Report 14126539 (Version 1)
Quarter: 2017Q4

REPORT INFORMATION
  Report Type: Spontaneous
  Country: US (occurrence: US)
  Receive Date: 20171025
  Receipt Date: 20171025
  Transmission Date: 20180321
  Serious: No
  Sender: FDA-Public Use
  Company Number: US-BAUSCH-BL-2017-005933

PATIENT
  Sex: Female
  Weight: 70.37 kg

DRUGS (8)
  1. THYROXINE [Concomitant]
     Active Substance: LEVOTHYROXINE
     Indication: THYROID DISORDER
     Route: 065
     Dates: start: 2013
  2. AMBIEN [Concomitant]
     Active Substance: ZOLPIDEM TARTRATE
     Indication: INSOMNIA
     Route: 065
  3. KLONOPIN [Concomitant]
     Active Substance: CLONAZEPAM
     Indication: ANXIETY
     Dosage: 1 TABLET TWO TIMES A DAY AS NEEDED
     Route: 065
     Dates: start: 2006
  4. ATIVAN [Suspect]
     Active Substance: LORAZEPAM
     Indication: AGORAPHOBIA
     Route: 065
     Dates: start: 2017
  5. AMITRIPTYLINE [Concomitant]
     Active Substance: AMITRIPTYLINE
     Indication: INSOMNIA
     Dosage: 10 MG, TWO TABLETS BY MOUTH AT BEDTIME
     Route: 048
  6. CHANTIX [Concomitant]
     Active Substance: VARENICLINE TARTRATE
     Indication: SMOKING CESSATION THERAPY
     Route: 065
     Dates: start: 2009, end: 2009
  7. CHANTIX [Concomitant]
     Active Substance: VARENICLINE TARTRATE
     Dosage: ONE A DAY OF THE WHITE PILS
     Route: 065
     Dates: start: 201702
  8. VITAMIN D [Concomitant]
     Active Substance: CHOLECALCIFEROL
     Indication: PARATHYROID DISORDER
     Route: 065
     Dates: start: 2013

REACTIONS (2)
  - Off label use [Unknown]
  - Drug ineffective [Unknown]
